FAERS Safety Report 5738533-8 (Version None)
Quarter: 2008Q2

REPORT INFORMATION
  Report Type: 
  Country: None (occurrence: None)
  Receive Date: 20080515
  Receipt Date: 20080506
  Transmission Date: 20081010
  Serious: Yes (Death, Other)
  Sender: FDA-Public Use
  Company Number: US-JNJFOC-20080203921

PATIENT
  Sex: Male

DRUGS (3)
  1. REMICADE [Suspect]
     Indication: CROHN'S DISEASE
     Route: 042
  2. IMURAN [Concomitant]
     Indication: CROHN'S DISEASE
  3. COUMADIN [Concomitant]
     Indication: PULMONARY EMBOLISM

REACTIONS (4)
  - BACTERIAL SEPSIS [None]
  - COLON CANCER METASTATIC [None]
  - HEPATIC FAILURE [None]
  - PULMONARY EMBOLISM [None]
